FAERS Safety Report 11965162 (Version 1)
Quarter: 2016Q1

REPORT INFORMATION
  Report Type: Spontaneous
  Country: US (occurrence: None)
  Receive Date: 20160122
  Receipt Date: 20160122
  Transmission Date: 20160526
  Serious: Yes (Disabling, Other)
  Sender: FDA-Public Use
  Company Number: None

PATIENT
  Age: 59 Year
  Sex: Female
  Weight: 49.9 kg

DRUGS (9)
  1. TIZANIDINE. [Concomitant]
     Active Substance: TIZANIDINE
  2. FLUTICASONE [Concomitant]
     Active Substance: FLUTICASONE\FLUTICASONE PROPIONATE
  3. PREMARIN CREAM [Concomitant]
  4. ZOFRAN [Concomitant]
     Active Substance: ONDANSETRON HYDROCHLORIDE
  5. ZINC WITH D3 [Concomitant]
  6. CLEOCIN [Suspect]
     Active Substance: CLINDAMYCIN PHOSPHATE
     Indication: GINGIVITIS
     Route: 048
     Dates: start: 20151229, end: 20160102
  7. HYDROCODONE [Concomitant]
     Active Substance: HYDROCODONE
  8. OMEPRAZOLE. [Concomitant]
     Active Substance: OMEPRAZOLE
  9. CALCIUM MAG [Concomitant]

REACTIONS (7)
  - Blood urine present [None]
  - Vulvovaginal discomfort [None]
  - Diarrhoea [None]
  - Muscle spasms [None]
  - Asthenia [None]
  - Nausea [None]
  - Abdominal rigidity [None]

NARRATIVE: CASE EVENT DATE: 20160102
